FAERS Safety Report 5893100-0 (Version None)
Quarter: 2008Q3

REPORT INFORMATION
  Report Type: 
  Country: None (occurrence: None)
  Receive Date: 20080919
  Receipt Date: 20080909
  Transmission Date: 20090109
  Serious: Yes (Other)
  Sender: FDA-Public Use
  Company Number: 2008EN000116

PATIENT
  Age: 33 Year
  Sex: Male

DRUGS (20)
  1. ABELCET [Suspect]
     Indication: EVIDENCE BASED TREATMENT
     Dosage: 350 MG; QD; IV
     Route: 042
     Dates: start: 20080625, end: 20080625
  2. NYSTAFORM [Concomitant]
  3. OMEPRAZOLE [Concomitant]
  4. ENOXAPARIN [Concomitant]
  5. IPRATROPIUM BROMIDE [Concomitant]
  6. GLUTAMINE [Concomitant]
  7. MEROPENEM [Concomitant]
  8. ACETAMINOPHEN [Concomitant]
  9. METOCLOPRAMIDE [Concomitant]
  10. CLONIDINE [Concomitant]
  11. CHLORDIAZEPOXIDE [Concomitant]
  12. MORPHINE [Concomitant]
  13. SOLI VITO [Concomitant]
  14. VITLIPID [Concomitant]
  15. MIDAZOLAM [Concomitant]
  16. FUROSEMIDE [Concomitant]
  17. VANCOMYCIN HYDROCHLORIDE [Concomitant]
  18. LIBRIUM ^ICN^ [Concomitant]
  19. CLEXANE [Concomitant]
  20. SALBUTAMOL [Concomitant]

REACTIONS (3)
  - BLOOD PRESSURE INCREASED [None]
  - OXYGEN SATURATION DECREASED [None]
  - RESPIRATORY RATE INCREASED [None]
